FAERS Safety Report 8113797-4 (Version None)
Quarter: 2012Q1

REPORT INFORMATION
  Report Type: 
  Country: None (occurrence: None)
  Receive Date: 20120203
  Receipt Date: 20120130
  Transmission Date: 20120608
  Serious: Yes (Other)
  Sender: FDA-Public Use
  Company Number: DK-BAYER-2012-009850

PATIENT

DRUGS (8)
  1. MELOXICAM [Suspect]
     Indication: PAIN
  2. OXAZEPAM [Suspect]
     Indication: PAIN
  3. SERTRALINE HYDROCHLORIDE [Suspect]
     Indication: PAIN
  4. NAPROXEN SODIUM [Suspect]
     Indication: PAIN
  5. PIROXICAM [Suspect]
     Indication: PAIN
  6. ACETAMINOPHEN [Suspect]
     Indication: PAIN
  7. ACETYLSALICYLIC ACID SRT [Suspect]
     Indication: PAIN
  8. IBUPROFEN [Suspect]
     Indication: PAIN

REACTIONS (1)
  - FRACTURE [None]
